FAERS Safety Report 5783332-4 (Version None)
Quarter: 2008Q2

REPORT INFORMATION
  Report Type: 
  Country: None (occurrence: None)
  Receive Date: 20080624
  Receipt Date: 20080617
  Transmission Date: 20081010
  Serious: Yes (Death, Life-Threatening)
  Sender: FDA-Public Use
  Company Number: DE-BAYER-200820612GPV

PATIENT
  Age: 53 Year
  Sex: Female

DRUGS (3)
  1. CIPROFLOXACIN HCL [Suspect]
     Indication: PNEUMONIA
     Dosage: AS USED: 500 MG
     Route: 048
     Dates: start: 20080309, end: 20080314
  2. NEXIUM [Concomitant]
     Indication: PROPHYLAXIS
     Dosage: TOTAL DAILY DOSE: 40 MG
     Route: 048
     Dates: start: 20080312, end: 20080314
  3. RAMIPRIL [Concomitant]
     Indication: HYPERTENSION
     Dosage: TOTAL DAILY DOSE: 15 MG
     Route: 048
     Dates: start: 20080206, end: 20080315

REACTIONS (5)
  - DERMATITIS BULLOUS [None]
  - MULTI-ORGAN FAILURE [None]
  - SEPSIS [None]
  - SUPERINFECTION [None]
  - TOXIC EPIDERMAL NECROLYSIS [None]
